FAERS Safety Report 16800349 (Version 2)
Quarter: 2019Q4

REPORT INFORMATION
  Report Type: Spontaneous
  Country: JP (occurrence: JP)
  Receive Date: 20190912
  Receipt Date: 20191001
  Transmission Date: 20200122
  Serious: Yes (Hospitalization, Other)
  Sender: FDA-Public Use
  Company Number: JP-GILEAD-2019-0427455

PATIENT
  Age: 70 Year
  Sex: Female

DRUGS (2)
  1. EPCLUSA [Suspect]
     Active Substance: SOFOSBUVIR\VELPATASVIR
     Indication: PRODUCT USED FOR UNKNOWN INDICATION
     Dosage: UNK
     Route: 048
  2. CELECOX [Concomitant]
     Active Substance: CELECOXIB

REACTIONS (10)
  - Hypotension [Unknown]
  - Circulatory collapse [Unknown]
  - Decreased appetite [Unknown]
  - Eructation [Unknown]
  - Urinary tract infection [Unknown]
  - Tibia fracture [Unknown]
  - Pyelonephritis [Unknown]
  - Off label use [Unknown]
  - Acute kidney injury [Unknown]
  - Urine output decreased [Unknown]
